FAERS Safety Report 22345087 (Version 1)
Quarter: 2023Q2

REPORT INFORMATION
  Report Type: Spontaneous
  Country: US (occurrence: US)
  Receive Date: 20230519
  Receipt Date: 20230519
  Transmission Date: 20230722
  Serious: No
  Sender: FDA-Public Use
  Company Number: US-INSUD PHARMA-2305US02868

PATIENT

DRUGS (3)
  1. FOSFOMYCIN [Suspect]
     Active Substance: FOSFOMYCIN
     Indication: Urinary tract infection
     Dosage: EVERY 3 DAYS FOR A TOTAL OF 3 DOSES
     Route: 048
     Dates: start: 20230504
  2. FOSFOMYCIN [Suspect]
     Active Substance: FOSFOMYCIN
     Dosage: EVERY 3 DAYS FOR A TOTAL OF 3 DOSES
     Route: 048
     Dates: start: 2021, end: 2021
  3. FOSFOMYCIN [Suspect]
     Active Substance: FOSFOMYCIN
     Dosage: EVERY 3 DAYS FOR A TOTAL OF 3 DOSES
     Route: 048
     Dates: start: 2020, end: 2020

REACTIONS (2)
  - Diarrhoea [Not Recovered/Not Resolved]
  - Off label use [Unknown]

NARRATIVE: CASE EVENT DATE: 20200101
